FAERS Safety Report 8886992 (Version 3)
Quarter: 2012Q4

REPORT INFORMATION
  Report Type: Report from Study
  Country: DE (occurrence: DE)
  Receive Date: 20121105
  Receipt Date: 20121126
  Transmission Date: 20130627
  Serious: Yes (Hospitalization)
  Sender: FDA-Public Use
  Company Number: DE-ROCHE-1149249

PATIENT
  Age: 64 Year
  Sex: Male
  Weight: 75 kg

DRUGS (12)
  1. FLUOROURACIL [Suspect]
     Dosage: D1+21
     Route: 040
  2. FLUOROURACIL [Suspect]
     Dosage: 2+4
     Route: 040
  3. FOLINIC ACID [Suspect]
     Indication: COLON CANCER
     Dosage: Last dose Prior to SAE: 25/Sep/2012, d1plus d21d14
     Route: 042
  4. OXALIPLATIN [Suspect]
     Indication: COLON CANCER
     Dosage: 1 D14 Last dose prior to SAE: 24/Sep/2012
     Route: 042
     Dates: start: 20120730
  5. RAMIPRIL [Concomitant]
     Route: 065
  6. CLOPIDOGREL [Concomitant]
  7. PANTOPRAZOL [Concomitant]
  8. SIMVASTATIN [Concomitant]
  9. METOPROLOL [Concomitant]
     Route: 065
  10. BEVACIZUMAB [Suspect]
     Indication: COLON CANCER
     Dosage: D1 D14 Last dose prior to SAE: 24/Sep/2012
     Route: 042
     Dates: start: 20120730
  11. BEVACIZUMAB [Suspect]
     Dosage: D1 D14
     Route: 042
  12. FLUOROURACIL [Suspect]
     Indication: COLON CANCER
     Dosage: D1+D21 Last dose prior to SAE: 25/Sep/2012
     Route: 040
     Dates: start: 20120730

REACTIONS (3)
  - Renal failure [Recovered/Resolved]
  - Fatigue [Not Recovered/Not Resolved]
  - Myocardial infarction [Recovered/Resolved]
